FAERS Safety Report 6419986-9 (Version None)
Quarter: 2009Q4

REPORT INFORMATION
  Report Type: 
  Country: None (occurrence: None)
  Receive Date: 20091029
  Receipt Date: 20091020
  Transmission Date: 20100525
  Serious: Yes (Hospitalization)
  Sender: FDA-Public Use
  Company Number: SE-PFIZER INC-2009285505

PATIENT
  Age: 69 Year

DRUGS (9)
  1. AROMASIN [Suspect]
     Indication: BREAST CANCER
     Dosage: UNK
     Dates: start: 20080101, end: 20090101
  2. TAMOXIFEN CITRATE [Suspect]
     Indication: BREAST CANCER
     Dosage: UNK
     Dates: start: 19950101, end: 19970101
  3. ARIMIDEX [Suspect]
     Indication: BREAST CANCER
     Dosage: UNK
     Dates: start: 19970101, end: 20060101
  4. EPIRUBICIN [Suspect]
     Indication: BREAST CANCER
     Dosage: UNK
     Dates: start: 20020901, end: 20070901
  5. FASLODEX [Suspect]
     Indication: BREAST CANCER
     Dosage: UNK
     Dates: start: 20080101, end: 20090101
  6. OMEPRAZOLE [Concomitant]
     Dosage: UNK
  7. ACETAMINOPHEN [Concomitant]
     Dosage: UNK
  8. KALCITENA [Concomitant]
     Dosage: UNK
  9. ZOPICLONE [Concomitant]
     Dosage: UNK

REACTIONS (1)
  - PULMONARY HYPERTENSION [None]
